FAERS Safety Report 17954972 (Version 3)
Quarter: 2020Q3

REPORT INFORMATION
  Report Type: Spontaneous
  Country: US (occurrence: US)
  Receive Date: 20200629
  Receipt Date: 20200908
  Transmission Date: 20201103
  Serious: Yes (Hospitalization, Other)
  Sender: FDA-Public Use
  Company Number: US-009507513-2006USA009873

PATIENT
  Age: 73 Year
  Sex: Male
  Weight: 56.24 kg

DRUGS (4)
  1. CARBOPLATIN. [Suspect]
     Active Substance: CARBOPLATIN
     Indication: HEAD AND NECK CANCER METASTATIC
     Dosage: UNK
     Dates: start: 20200327, end: 20200417
  2. FLUOROURACIL. [Suspect]
     Active Substance: FLUOROURACIL
     Indication: HEAD AND NECK CANCER METASTATIC
     Dosage: UNK
     Dates: start: 20200327, end: 20200417
  3. KEYTRUDA [Suspect]
     Active Substance: PEMBROLIZUMAB
     Indication: LIP AND/OR ORAL CAVITY CANCER
  4. KEYTRUDA [Suspect]
     Active Substance: PEMBROLIZUMAB
     Indication: HEAD AND NECK CANCER METASTATIC
     Dosage: 200 MILLIGRAM, Q3W
     Dates: start: 20200327, end: 20200327

REACTIONS (3)
  - Immune-mediated enterocolitis [Not Recovered/Not Resolved]
  - Mucosal inflammation [Unknown]
  - Rocky mountain spotted fever [Not Recovered/Not Resolved]

NARRATIVE: CASE EVENT DATE: 2020
